FAERS Safety Report 4899490-X (Version None)
Quarter: 2006Q1

REPORT INFORMATION
  Report Type: 
  Country: None (occurrence: None)
  Receive Date: 20060131
  Receipt Date: 20060125
  Transmission Date: 20060701
  Serious: Yes (Death)
  Sender: FDA-Public Use
  Company Number: J081-002-002163

PATIENT
  Age: 87 Year
  Sex: Female

DRUGS (9)
  1. ARICEPT [Suspect]
     Indication: DEMENTIA ALZHEIMER'S TYPE
     Dosage: 2.5 MG, 1 IN 1 D, ORAL; SEE IMAGE
     Route: 048
     Dates: start: 20051031, end: 20051109
  2. ARICEPT [Suspect]
     Indication: DEMENTIA ALZHEIMER'S TYPE
     Dosage: 2.5 MG, 1 IN 1 D, ORAL; SEE IMAGE
     Route: 048
     Dates: start: 20051110, end: 20060107
  3. LANIRAPID (METILDIGOXIN) [Concomitant]
  4. DIOVAN [Concomitant]
  5. ATELEC (CLINIDIPINE) [Concomitant]
  6. ALDACTONE [Concomitant]
  7. MERISLON (BETAHISTINE HYDROCHLORIDE) [Concomitant]
  8. OMEPRAZOLE [Concomitant]
  9. ONEALFA (ALFACALCIDOL) [Concomitant]

REACTIONS (5)
  - ANOREXIA [None]
  - BLOOD PRESSURE INCREASED [None]
  - COUGH [None]
  - HEART RATE INCREASED [None]
  - SUDDEN DEATH [None]
